FAERS Safety Report 23429428 (Version 4)
Quarter: 2025Q3

REPORT INFORMATION
  Report Type: Spontaneous
  Country: US (occurrence: US)
  Receive Date: 20240122
  Receipt Date: 20250821
  Transmission Date: 20251020
  Serious: Yes (Disabling, Other)
  Sender: PURDUE
  Company Number: US-PURDUE PHARMA-USA-2024-0307199

PATIENT
  Sex: Female

DRUGS (4)
  1. OXYCONTIN [Suspect]
     Active Substance: OXYCODONE HYDROCHLORIDE
     Indication: Dementia
     Route: 048
     Dates: start: 2008
  2. OXYCONTIN [Suspect]
     Active Substance: OXYCODONE HYDROCHLORIDE
     Indication: Procedural headache
     Dosage: 30 MILLIGRAM, BID
     Route: 048
  3. ACETAMINOPHEN\OXYCODONE HYDROCHLORIDE [Suspect]
     Active Substance: ACETAMINOPHEN\OXYCODONE HYDROCHLORIDE
     Indication: Product used for unknown indication
     Route: 048
  4. TRAMADOL [Suspect]
     Active Substance: TRAMADOL
     Indication: Product used for unknown indication
     Route: 048

REACTIONS (22)
  - Bedridden [Unknown]
  - Disability [Unknown]
  - Drug dependence [Unknown]
  - Impaired quality of life [Unknown]
  - Impaired work ability [Unknown]
  - General physical health deterioration [Unknown]
  - Emotional distress [Unknown]
  - Thinking abnormal [Unknown]
  - Cognitive disorder [Unknown]
  - Injury [Unknown]
  - Mental disorder [Unknown]
  - Loss of personal independence in daily activities [Unknown]
  - Disturbance in attention [Unknown]
  - Feeling of despair [Unknown]
  - Sedation [Unknown]
  - Amnesia [Unknown]
  - Depression [Unknown]
  - Diarrhoea [Unknown]
  - Pain [Unknown]
  - Product use in unapproved indication [Unknown]
  - Drug withdrawal syndrome [Unknown]
  - Adverse drug reaction [Unknown]

NARRATIVE: CASE EVENT DATE: 20110101
